FAERS Safety Report 9687975 (Version 2)
Quarter: 2014Q1

REPORT INFORMATION
  Report Type: Spontaneous
  Country: TW (occurrence: TW)
  Receive Date: 20131114
  Receipt Date: 20140131
  Transmission Date: 20141002
  Serious: Yes (Other)
  Sender: FDA-Public Use
  Company Number: PHHY2013TW129453

PATIENT
  Sex: 0

DRUGS (1)
  1. LESCOL [Suspect]
     Dosage: 80 MG, QD
     Route: 048
     Dates: start: 2012

REACTIONS (1)
  - Cataract [Not Recovered/Not Resolved]
